FAERS Safety Report 16004467 (Version 1)
Quarter: 2019Q1

REPORT INFORMATION
  Report Type: Spontaneous
  Country: US (occurrence: US)
  Receive Date: 20190225
  Receipt Date: 20190225
  Transmission Date: 20190418
  Serious: Yes (Life-Threatening, Hospitalization)
  Sender: FDA-Public Use
  Company Number: None

PATIENT
  Age: 49 Year
  Sex: Female

DRUGS (14)
  1. DUONEB [Concomitant]
     Active Substance: ALBUTEROL SULFATE\IPRATROPIUM BROMIDE
  2. COREG [Concomitant]
     Active Substance: CARVEDILOL
  3. MULTIVITAMIN [Concomitant]
     Active Substance: VITAMINS
  4. MIRALAX [Concomitant]
     Active Substance: POLYETHYLENE GLYCOL 3350
  5. TYLENOL [Concomitant]
     Active Substance: ACETAMINOPHEN
  6. BETHANECHOL [Concomitant]
     Active Substance: BETHANECHOL
  7. COLLAGENASE SANTYL [Concomitant]
     Active Substance: COLLAGENASE CLOSTRIDIUM HISTOLYTICUM
  8. MUCINEX [Concomitant]
     Active Substance: GUAIFENESIN
  9. BUMEX [Concomitant]
     Active Substance: BUMETANIDE
  10. GABAPENTIN. [Concomitant]
     Active Substance: GABAPENTIN
  11. TRAMADOL. [Concomitant]
     Active Substance: TRAMADOL
  12. GLIPIZIDE XR [Suspect]
     Active Substance: GLIPIZIDE
     Indication: TYPE 2 DIABETES MELLITUS
     Route: 048
     Dates: start: 20180529, end: 20181124
  13. FAMOTIDINE. [Concomitant]
     Active Substance: FAMOTIDINE
  14. FERREX [Concomitant]
     Active Substance: FERRIC POLYSACCHARIDE COMPLEX

REACTIONS (3)
  - Therapy cessation [None]
  - Renal impairment [None]
  - Blood glucose decreased [None]

NARRATIVE: CASE EVENT DATE: 20181125
